FAERS Safety Report 5917919-2 (Version None)
Quarter: 2008Q4

REPORT INFORMATION
  Report Type: 
  Country: None (occurrence: None)
  Receive Date: 20081014
  Receipt Date: 20081002
  Transmission Date: 20090506
  Serious: Yes (Other)
  Sender: FDA-Public Use
  Company Number: JP-PFIZER INC-2008083869

PATIENT
  Sex: Female

DRUGS (7)
  1. SOLANAX [Suspect]
     Route: 048
  2. EPADEL [Concomitant]
     Route: 048
  3. ASPIRIN [Concomitant]
     Route: 048
  4. DAIOKANZOTO [Concomitant]
     Route: 048
  5. OLMETEC [Concomitant]
     Route: 048
  6. LANDEL [Concomitant]
     Route: 048
  7. TERNELIN [Concomitant]
     Route: 048

REACTIONS (1)
  - INTERSTITIAL LUNG DISEASE [None]
